FAERS Safety Report 11786203 (Version 6)
Quarter: 2016Q1

REPORT INFORMATION
  Report Type: Spontaneous
  Country: JP (occurrence: JP)
  Receive Date: 20151130
  Receipt Date: 20160216
  Transmission Date: 20160525
  Serious: Yes (Life-Threatening, Hospitalization, Other)
  Sender: FDA-Public Use
  Company Number: JP-SA-2015SA193998

PATIENT
  Age: 54 Year
  Sex: Female

DRUGS (6)
  1. FLUOROURACIL. [Suspect]
     Active Substance: FLUOROURACIL
     Indication: COLON CANCER STAGE IV
     Dosage: BI-WEEKLY
     Route: 040
  2. ELPLAT [Suspect]
     Active Substance: OXALIPLATIN
     Indication: COLON CANCER STAGE IV
     Dosage: INFUSION
     Route: 041
  3. AVASTIN [Suspect]
     Active Substance: BEVACIZUMAB
     Indication: COLON CANCER STAGE IV
     Dosage: BI-WEEKLY
     Route: 041
  4. ELPLAT [Suspect]
     Active Substance: OXALIPLATIN
     Indication: COLON CANCER STAGE IV
     Dosage: AT DECREASED DOSE
     Route: 041
  5. FLUOROURACIL. [Suspect]
     Active Substance: FLUOROURACIL
     Indication: COLON CANCER STAGE IV
     Dosage: BI-WEEKLY
     Route: 041
  6. LEUCOVORIN. [Suspect]
     Active Substance: LEUCOVORIN
     Indication: COLON CANCER STAGE IV
     Dosage: BI-WEEKLY
     Route: 065

REACTIONS (9)
  - Hypertension [Unknown]
  - Abdominal pain [Recovering/Resolving]
  - Intestinal obstruction [Recovered/Resolved]
  - Vomiting [Recovering/Resolving]
  - Impaired healing [Unknown]
  - Large intestinal stenosis [Recovering/Resolving]
  - Nausea [Recovering/Resolving]
  - Rectal obstruction [Recovering/Resolving]
  - Neutrophil count decreased [Unknown]
